FAERS Safety Report 4623607-5 (Version None)
Quarter: 2005Q2

REPORT INFORMATION
  Report Type: 
  Country: None (occurrence: None)
  Receive Date: 20050325
  Receipt Date: 20041215
  Transmission Date: 20051028
  Serious: No
  Sender: FDA-Public Use
  Company Number: USA041080637

PATIENT
  Age: 68 Year
  Sex: Female
  Weight: 83 kg

DRUGS (3)
  1. FORTEO [Suspect]
     Indication: BONE DISORDER
     Dosage: 20 UG/ 1 DAY
     Dates: start: 20040901
  2. FORTEO [Suspect]
     Indication: OSTEOPOROSIS
     Dosage: 20 UG/ 1 DAY
     Dates: start: 20040901
  3. CALCIUM GLUCONATE [Concomitant]

REACTIONS (3)
  - INJECTION SITE DISCOLOURATION [None]
  - INJECTION SITE HAEMORRHAGE [None]
  - INJECTION SITE PAIN [None]
